FAERS Safety Report 12530243 (Version 1)
Quarter: 2016Q3

REPORT INFORMATION
  Report Type: Spontaneous
  Country: US (occurrence: US)
  Receive Date: 20160706
  Receipt Date: 20160706
  Transmission Date: 20161109
  Serious: No
  Sender: FDA-Public Use
  Company Number: US-PFIZER INC-2016307687

PATIENT
  Age: 28 Year
  Sex: Female
  Weight: 61.23 kg

DRUGS (2)
  1. ADVIL [Suspect]
     Active Substance: IBUPROFEN
     Indication: HEADACHE
     Dosage: 200MG TWO LIQUIGELS ONCE
     Route: 048
     Dates: start: 201605, end: 201605
  2. ADVIL [Suspect]
     Active Substance: IBUPROFEN
     Indication: NECK PAIN
     Dosage: 200MG TWO LIQUIGELS ONCE
     Route: 048
     Dates: start: 20160617, end: 20160617

REACTIONS (1)
  - Vomiting [Recovered/Resolved]

NARRATIVE: CASE EVENT DATE: 201605
